FAERS Safety Report 9272856 (Version 1)
Quarter: 2013Q2

REPORT INFORMATION
  Report Type: Spontaneous
  Country: US (occurrence: US)
  Receive Date: 20130506
  Receipt Date: 20130506
  Transmission Date: 20140414
  Serious: No
  Sender: FDA-Public Use
  Company Number: US-ASTRAZENECA-2012SE39047

PATIENT
  Sex: Female

DRUGS (2)
  1. PRILOSEC OTC [Suspect]
     Indication: GASTRIC DISORDER
     Route: 048
     Dates: start: 20120519
  2. DIAZEPAM [Interacting]
     Dosage: UNKNOWN

REACTIONS (2)
  - Throat irritation [Not Recovered/Not Resolved]
  - Labelled drug-drug interaction medication error [Unknown]
